FAERS Safety Report 7437440-2 (Version None)
Quarter: 2011Q2

REPORT INFORMATION
  Report Type: 
  Country: None (occurrence: None)
  Receive Date: 20110426
  Receipt Date: 20100708
  Transmission Date: 20111010
  Serious: No
  Sender: FDA-Public Use
  Company Number: US-PFIZER INC-2010086888

PATIENT
  Sex: Female

DRUGS (1)
  1. ESTRING [Suspect]
     Dosage: UNK
     Route: 067

REACTIONS (4)
  - DRUG INEFFECTIVE [None]
  - INAPPROPRIATE SCHEDULE OF DRUG ADMINISTRATION [None]
  - VULVOVAGINAL PRURITUS [None]
  - VULVOVAGINAL BURNING SENSATION [None]
